FAERS Safety Report 21245313 (Version 3)
Quarter: 2023Q1

REPORT INFORMATION
  Report Type: Report from Study
  Country: ES (occurrence: ES)
  Receive Date: 20220823
  Receipt Date: 20230330
  Transmission Date: 20230417
  Serious: Yes (Death, Hospitalization, Other)
  Sender: FDA-Public Use
  Company Number: ES-CELLTRION INC.-2021ES019360

PATIENT

DRUGS (55)
  1. RITUXIMAB [Suspect]
     Active Substance: RITUXIMAB
     Indication: Diffuse large B-cell lymphoma
     Dosage: 828.75 MG/M2, EVERY 3 WEEKS; ON 12/NOV/2021, HE RECEIVED MOST RECENT DOSE OF RITUXIMAB PRIOR TO SAE
     Dates: start: 20211022
  2. VINCRISTINE [Suspect]
     Active Substance: VINCRISTINE
     Indication: Diffuse large B-cell lymphoma
     Dosage: 2 MG, EVERY 3 WEEKS ON 12/NOV/2021, HE RECEIVED MOST RECENT DOSE OF VINCRISTINE (1.99 MG/M2) PRIOR T
     Route: 042
     Dates: start: 20211022
  3. VINCRISTINE [Suspect]
     Active Substance: VINCRISTINE
     Dosage: 1.99 MG, ON 12NOV2021, RECEIVED MOST RECENT DOSE PRIOR TO SAE
     Dates: start: 20211112
  4. VINCRISTINE [Suspect]
     Active Substance: VINCRISTINE
     Dosage: 2 MG, EVERY 3 WEEK
     Dates: start: 20211022
  5. PREDNISONE [Suspect]
     Active Substance: PREDNISONE
     Indication: Diffuse large B-cell lymphoma
     Dosage: 100 MG; ON ON 16/NOV/2021, HE RECEIVED MOST RECENT DOSE OF PREDNISONE PRIOR TO SAE
     Dates: start: 20211023
  6. GLOFITAMAB [Suspect]
     Active Substance: GLOFITAMAB
     Indication: Diffuse large B-cell lymphoma
     Dosage: 2.5 MG, Q3W, ON 03/DEC/2021, HE RECEIVED MOST RECENT DOSE OF GLOFITAMAB 10 MG (TOTAL VOLUME : 25 ML)
     Dates: start: 20211119
  7. GLOFITAMAB [Suspect]
     Active Substance: GLOFITAMAB
     Dosage: 10 MG EVERY 3 WEEK, TOTAL VOLUME : 100 ML (MOST RECENT DOSE PRIOR TO SAE)
     Dates: start: 20211203
  8. METHYLPREDNISOLONE [Suspect]
     Active Substance: METHYLPREDNISOLONE
     Indication: Diffuse large B-cell lymphoma
     Dosage: 80 MG; ON 12/NOV/2021, HE RECEIVED MOST RECENT DOSE 80 MG OF METHYLPREDNISOLONE PRIOR TO SAE
     Dates: start: 20211022
  9. CYCLOPHOSPHAMIDE [Suspect]
     Active Substance: CYCLOPHOSPHAMIDE
     Indication: Diffuse large B-cell lymphoma
     Dosage: 1657.5 MG/M2, Q3W, ON 12/NOV/2021, HE RECEIVED MOST RECENT DOSE TOTAL VOLUME: 332.88 ML OF CYCLOPHOS
     Dates: start: 20211022
  10. CYCLOPHOSPHAMIDE [Suspect]
     Active Substance: CYCLOPHOSPHAMIDE
     Dosage: 1657.5 MG/M2, Q3W, ON 12NOV2021, RECEIVED MOST RECENT DOSE PRIOR TO SAE
     Dates: start: 20211022
  11. DOXORUBICIN [Suspect]
     Active Substance: DOXORUBICIN
     Indication: Diffuse large B-cell lymphoma
     Dosage: 110.5 MG/M2, Q3W, ON 12/NOV/2021, HE RECEIVED MOST RECENT DOSE OF DOXORUBICIN PRIOR TO SAE TOTAL VOL
     Dates: start: 20211022
  12. MEROPENEM [Concomitant]
     Active Substance: MEROPENEM
     Indication: Cytokine release syndrome
     Dosage: UNK
     Dates: start: 20211203, end: 20211204
  13. CLAVULANIC ACID [Concomitant]
     Active Substance: CLAVULANIC ACID
     Indication: Pyrexia
     Dosage: UNK
     Dates: start: 20211106, end: 20211106
  14. CLAVULANIC ACID [Concomitant]
     Active Substance: CLAVULANIC ACID
     Indication: COVID-19
     Dosage: UNK UNK,
     Dates: start: 20211226, end: 202201
  15. PREDNISONE [Concomitant]
     Active Substance: PREDNISONE
     Indication: Diffuse large B-cell lymphoma
     Dosage: UNK
     Dates: start: 20211205, end: 20211206
  16. CIPROFLOXACIN [Concomitant]
     Active Substance: CIPROFLOXACIN
     Indication: Pyrexia
     Dosage: UNK
     Dates: start: 20211106, end: 20211106
  17. DEXAMETHASONE [Concomitant]
     Active Substance: DEXAMETHASONE
     Indication: Prophylaxis
     Dosage: 20 MG
     Dates: start: 20211119, end: 20211119
  18. DEXAMETHASONE [Concomitant]
     Active Substance: DEXAMETHASONE
     Dosage: 5 MG
     Dates: start: 20211119, end: 20211119
  19. DEXAMETHASONE [Concomitant]
     Active Substance: DEXAMETHASONE
     Dosage: 20 MG
     Dates: start: 20211203, end: 20211203
  20. DEXAMETHASONE [Concomitant]
     Active Substance: DEXAMETHASONE
     Dosage: 20 MG
     Dates: start: 20211217, end: 20211217
  21. ALLOPURINOL [Concomitant]
     Active Substance: ALLOPURINOL
     Indication: Hyperuricaemia
     Dosage: UNK
  22. TRIMETHOPRIM [Concomitant]
     Active Substance: TRIMETHOPRIM
     Indication: Antibiotic prophylaxis
     Dosage: UNK
     Dates: start: 20211019
  23. TRIMETHOPRIM [Concomitant]
     Active Substance: TRIMETHOPRIM
     Dosage: UNK
     Dates: start: 20211013
  24. LORAZEPAM [Concomitant]
     Active Substance: LORAZEPAM
     Dosage: UNK
  25. ASPIRIN [Concomitant]
     Active Substance: ASPIRIN
     Indication: Pain
     Dosage: UNK
  26. TENOFOVIR [Concomitant]
     Active Substance: TENOFOVIR
     Indication: Antiviral prophylaxis
     Dosage: UNK
     Dates: start: 20211019
  27. SULFAMETHOXAZOLE [Concomitant]
     Active Substance: SULFAMETHOXAZOLE
     Indication: Antibiotic prophylaxis
     Dosage: UNK
     Dates: start: 20211019
  28. DEXCHLORPHENIRAMINE [Concomitant]
     Active Substance: DEXCHLORPHENIRAMINE
     Indication: Prophylaxis
     Dosage: 5 MG
     Dates: start: 20211119, end: 20211119
  29. DEXCHLORPHENIRAMINE [Concomitant]
     Active Substance: DEXCHLORPHENIRAMINE
     Dosage: 5 MG
     Dates: start: 20211203, end: 20211203
  30. DEXCHLORPHENIRAMINE [Concomitant]
     Active Substance: DEXCHLORPHENIRAMINE
     Dosage: 5 MG
     Dates: start: 20211210, end: 20211210
  31. DEXCHLORPHENIRAMINE [Concomitant]
     Active Substance: DEXCHLORPHENIRAMINE
     Dosage: 5 MG
     Dates: start: 20211217, end: 20211217
  32. PIPERACILLIN AND TAZOBACTAM [Concomitant]
     Active Substance: PIPERACILLIN SODIUM\TAZOBACTAM SODIUM
     Indication: COVID-19
     Dosage: UNK
     Dates: start: 20211204, end: 20211205
  33. PIPERACILLIN AND TAZOBACTAM [Concomitant]
     Active Substance: PIPERACILLIN SODIUM\TAZOBACTAM SODIUM
     Indication: Cytokine release syndrome
     Dosage: UNK
     Dates: start: 20211231
  34. PIPERACILLIN AND TAZOBACTAM [Concomitant]
     Active Substance: PIPERACILLIN SODIUM\TAZOBACTAM SODIUM
     Dosage: UNK
     Dates: start: 20211224, end: 20211226
  35. REMDESIVIR [Concomitant]
     Active Substance: REMDESIVIR
     Indication: COVID-19
     Dosage: UNK
     Dates: start: 20211225, end: 20211225
  36. REMDESIVIR [Concomitant]
     Active Substance: REMDESIVIR
     Indication: COVID-19
  37. ACYCLOVIR [Concomitant]
     Active Substance: ACYCLOVIR
     Indication: Antiviral prophylaxis
     Dosage: UNK
     Dates: start: 20211019
  38. VALSARTAN [Concomitant]
     Active Substance: VALSARTAN
     Indication: Hypertension
     Dosage: UNK
  39. AMOXICILLIN [Concomitant]
     Active Substance: AMOXICILLIN
     Indication: Pyrexia
     Dosage: UNK
     Dates: start: 20211106, end: 20211106
  40. AMOXICILLIN [Concomitant]
     Active Substance: AMOXICILLIN
     Indication: COVID-19
     Dosage: UNK
     Dates: start: 20211226, end: 202201
  41. ZOFRAN [Concomitant]
     Active Substance: ONDANSETRON HYDROCHLORIDE
     Indication: Nausea
     Dosage: UNK
     Dates: start: 20211118
  42. METAMIZOLE [Concomitant]
     Active Substance: METAMIZOLE
     Indication: COVID-19
     Dosage: UNK
     Dates: start: 20211226
  43. FILGRASTIM [Concomitant]
     Active Substance: FILGRASTIM
     Indication: Neutropenia
     Dosage: UNK
     Dates: start: 20211026, end: 20211027
  44. FILGRASTIM [Concomitant]
     Active Substance: FILGRASTIM
     Dosage: UNK
     Dates: start: 20211027, end: 20211028
  45. FILGRASTIM [Concomitant]
     Active Substance: FILGRASTIM
     Dosage: UNK
     Dates: start: 20211215, end: 20211216
  46. ACETAMINOPHEN [Concomitant]
     Active Substance: ACETAMINOPHEN
     Indication: Prophylaxis
     Dosage: 1 G/DAY
     Dates: start: 20211210, end: 20211210
  47. ACETAMINOPHEN [Concomitant]
     Active Substance: ACETAMINOPHEN
     Dosage: 1 G/DAY
     Dates: start: 20211203, end: 20211203
  48. ACETAMINOPHEN [Concomitant]
     Active Substance: ACETAMINOPHEN
     Dosage: 1 G/DAY
     Dates: start: 20211217, end: 20211217
  49. ACETAMINOPHEN [Concomitant]
     Active Substance: ACETAMINOPHEN
     Dosage: 1 G, 1X/DAY
     Dates: start: 20211119, end: 20211119
  50. TAZOBACTAM [Concomitant]
     Active Substance: TAZOBACTAM
     Indication: COVID-19
     Dosage: UNK
  51. TAZOBACTAM [Concomitant]
     Active Substance: TAZOBACTAM
     Dosage: UNK
  52. PIPERACILLIN SODIUM\TAZOBACTAM SODIUM [Concomitant]
     Active Substance: PIPERACILLIN SODIUM\TAZOBACTAM SODIUM
     Indication: COVID-19
     Dosage: UNK
     Dates: start: 20211225
  53. PIPERACILLIN SODIUM\TAZOBACTAM SODIUM [Concomitant]
     Active Substance: PIPERACILLIN SODIUM\TAZOBACTAM SODIUM
     Indication: Cytokine release syndrome
     Dosage: UNK
     Dates: start: 20211231
  54. PIPERACILLIN SODIUM\TAZOBACTAM SODIUM [Concomitant]
     Active Substance: PIPERACILLIN SODIUM\TAZOBACTAM SODIUM
     Dosage: UNK
     Dates: start: 20211204, end: 20211205
  55. DOXORUBICIN HYDROCHLORIDE [Suspect]
     Active Substance: DOXORUBICIN HYDROCHLORIDE
     Indication: Diffuse large B-cell lymphoma
     Dosage: 110.5 MG EVERY 3 WEEK, ON 12NOV2021, RECEIVED MOST RECENT DOSE PRIOR TO SAE
     Dates: start: 20211022

REACTIONS (3)
  - Death [Fatal]
  - Cytokine release syndrome [Recovered/Resolved with Sequelae]
  - Overdose [Unknown]

NARRATIVE: CASE EVENT DATE: 20211203
